FAERS Safety Report 8484572-6 (Version None)
Quarter: 2012Q3

REPORT INFORMATION
  Report Type: 
  Country: None (occurrence: None)
  Receive Date: 20120703
  Receipt Date: 20120426
  Transmission Date: 20120928
  Serious: No
  Sender: FDA-Public Use
  Company Number: US-TEVA-326888USA

PATIENT
  Sex: Male
  Weight: 86.26 kg

DRUGS (7)
  1. DUTASTERIDE [Concomitant]
     Indication: PROSTATIC DISORDER
     Dosage: .5 MILLIGRAM;
     Route: 048
  2. NUVIGIL [Suspect]
     Indication: SLEEP APNOEA SYNDROME
     Dosage: 150 MILLIGRAM;
     Route: 048
     Dates: start: 20120131
  3. POLYETHYLENE GLYCOL [Concomitant]
     Indication: CONSTIPATION
     Dosage: 17 GRAM;
     Route: 048
  4. ESCITALOPRAM OXALATE [Concomitant]
     Indication: DEPRESSION
     Dosage: 10 MILLIGRAM;
     Route: 048
     Dates: start: 20120131
  5. VALSARTAN [Concomitant]
     Indication: HYPERTENSION
     Dosage: 320 MILLIGRAM;
     Route: 048
  6. ALISKIREN [Concomitant]
     Indication: HYPERTENSION
     Route: 048
  7. ASPIRIN [Concomitant]
     Indication: ANTICOAGULANT THERAPY
     Route: 048

REACTIONS (6)
  - MUSCLE SPASMS [None]
  - WEIGHT DECREASED [None]
  - EAR CONGESTION [None]
  - VISION BLURRED [None]
  - FEELING ABNORMAL [None]
  - DIZZINESS [None]
